FAERS Safety Report 7926958-1 (Version None)
Quarter: 2011Q4

REPORT INFORMATION
  Report Type: 
  Country: None (occurrence: None)
  Receive Date: 20111118
  Receipt Date: 20111108
  Transmission Date: 20120403
  Serious: Yes (Other)
  Sender: FDA-Public Use
  Company Number: US-JNJFOC-20111103452

PATIENT
  Age: 59 Year
  Sex: Female
  Weight: 78.47 kg

DRUGS (2)
  1. CORGARD [Concomitant]
     Indication: LONG QT SYNDROME
     Route: 048
     Dates: start: 20010101
  2. REMICADE [Suspect]
     Indication: CROHN'S DISEASE
     Route: 042
     Dates: start: 20110101

REACTIONS (8)
  - PARAESTHESIA [None]
  - ALOPECIA [None]
  - DRUG INEFFECTIVE [None]
  - BURNING SENSATION [None]
  - HEADACHE [None]
  - FATIGUE [None]
  - ABDOMINAL PAIN UPPER [None]
  - PAIN [None]
